FAERS Safety Report 9402636 (Version 2)
Quarter: 2013Q3

REPORT INFORMATION
  Report Type: Report from Study
  Country: US (occurrence: US)
  Receive Date: 20130716
  Receipt Date: 20130731
  Transmission Date: 20140515
  Serious: Yes (Death, Hospitalization, Other)
  Sender: FDA-Public Use
  Company Number: US-ACTELION-A-NJ2012-76461

PATIENT
  Age: 74 Year
  Sex: Male

DRUGS (2)
  1. TRACLEER [Suspect]
     Indication: PULMONARY ARTERIAL HYPERTENSION
     Dosage: UNK
     Route: 048
  2. COUMADIN [Concomitant]

REACTIONS (8)
  - Death [Fatal]
  - Sepsis [Recovering/Resolving]
  - Arterial repair [Recovering/Resolving]
  - Infection [Recovering/Resolving]
  - Respiratory tract congestion [Recovering/Resolving]
  - Fluid retention [Unknown]
  - Oedema [Unknown]
  - Dyspnoea [Unknown]
